FAERS Safety Report 25520035 (Version 8)
Quarter: 2025Q3

REPORT INFORMATION
  Report Type: Spontaneous
  Country: US (occurrence: US)
  Receive Date: 20250704
  Receipt Date: 20250927
  Transmission Date: 20251021
  Serious: Yes (Hospitalization, Other)
  Sender: SANOFI AVENTIS
  Company Number: US-SA-2025SA092183

PATIENT
  Age: 76 Year
  Sex: Female
  Weight: 101.41 kg

DRUGS (26)
  1. DUPIXENT [Suspect]
     Active Substance: DUPILUMAB
     Indication: Product used for unknown indication
     Dosage: 300 MG, QOW
     Route: 058
     Dates: start: 202408, end: 202507
  2. TYVASO [Suspect]
     Active Substance: TREPROSTINIL
  3. DULOXETINE HYDROCHLORIDE [Concomitant]
     Active Substance: DULOXETINE HYDROCHLORIDE
  4. FAMOTIDINE [Concomitant]
     Active Substance: FAMOTIDINE
  5. ALBUTEROL SULFATE [Concomitant]
     Active Substance: ALBUTEROL SULFATE
  6. FERROUS GLUCONATE [Concomitant]
     Active Substance: FERROUS GLUCONATE
  7. MONTELUKAST SODIUM [Concomitant]
     Active Substance: MONTELUKAST SODIUM
  8. CETIRIZINE HCL [Concomitant]
     Active Substance: CETIRIZINE HYDROCHLORIDE
  9. OHTUVAYRE [Concomitant]
     Active Substance: ENSIFENTRINE
  10. CALCIUM CARBONATE\CHOLECALCIFEROL [Concomitant]
     Active Substance: CALCIUM CARBONATE\CHOLECALCIFEROL
  11. METOPROLOL TARTRATE [Concomitant]
     Active Substance: METOPROLOL TARTRATE
  12. PREDNISONE [Concomitant]
     Active Substance: PREDNISONE
  13. OXYGEN [Concomitant]
     Active Substance: OXYGEN
  14. MULTAQ [Concomitant]
     Active Substance: DRONEDARONE
  15. LEVOTHYROXINE SODIUM [Concomitant]
     Active Substance: LEVOTHYROXINE SODIUM
  16. HYDROXYCHLOROQUINE SULFATE [Concomitant]
     Active Substance: HYDROXYCHLOROQUINE SULFATE
  17. ATORVASTATIN CALCIUM [Concomitant]
     Active Substance: ATORVASTATIN CALCIUM
  18. BRILINTA [Concomitant]
     Active Substance: TICAGRELOR
  19. FUROSEMIDE [Concomitant]
     Active Substance: FUROSEMIDE
  20. ELIQUIS [Concomitant]
     Active Substance: APIXABAN
  21. BREZTRI [Concomitant]
     Active Substance: BUDESONIDE\FORMOTEROL\GLYCOPYRROLATE
  22. FISH OIL [Concomitant]
     Active Substance: FISH OIL
  23. JARDIANCE [Concomitant]
     Active Substance: EMPAGLIFLOZIN
  24. SILDENAFIL CITRATE [Concomitant]
     Active Substance: SILDENAFIL CITRATE
  25. NUCALA [Concomitant]
     Active Substance: MEPOLIZUMAB
  26. VITAMINS [Concomitant]
     Active Substance: VITAMINS

REACTIONS (11)
  - Atrial fibrillation [Unknown]
  - Anaemia [Not Recovered/Not Resolved]
  - Haemoglobin decreased [Unknown]
  - Asthenia [Unknown]
  - Dyspnoea [Unknown]
  - Pulmonary arterial hypertension [Unknown]
  - Hospitalisation [Unknown]
  - Throat irritation [Unknown]
  - Cough [Unknown]
  - Chest discomfort [Unknown]
  - Somnolence [Unknown]

NARRATIVE: CASE EVENT DATE: 20250101
